FAERS Safety Report 6312774-3 (Version None)
Quarter: 2009Q3

REPORT INFORMATION
  Report Type: 
  Country: None (occurrence: None)
  Receive Date: 20090814
  Receipt Date: 20090723
  Transmission Date: 20100115
  Serious: Yes (Hospitalization, Other)
  Sender: FDA-Public Use
  Company Number: DSA_34038_2009

PATIENT
  Sex: Female

DRUGS (3)
  1. CARDIZEM LA [Suspect]
     Indication: HYPERTENSION
     Dosage: (ONE-HALF TABLET ORAL)
     Route: 048
     Dates: start: 20040601, end: 20040601
  2. LEXAPRO [Suspect]
     Indication: DEPRESSION
     Dosage: (DF ORAL)
     Route: 048
     Dates: start: 20040101, end: 20040101
  3. REMERON [Suspect]
     Indication: DRUG USE FOR UNKNOWN INDICATION
     Dosage: (DF ORAL)
     Route: 048

REACTIONS (4)
  - BLOOD PRESSURE INCREASED [None]
  - GRAND MAL CONVULSION [None]
  - LOSS OF CONSCIOUSNESS [None]
  - PHARYNGEAL DISORDER [None]
